FAERS Safety Report 15846448 (Version 3)
Quarter: 2020Q2

REPORT INFORMATION
  Report Type: Spontaneous
  Country: US (occurrence: US)
  Receive Date: 20190120
  Receipt Date: 20200617
  Transmission Date: 20200713
  Serious: No
  Sender: FDA-Public Use
  Company Number: US-ELI_LILLY_AND_COMPANY-US201901008119

PATIENT
  Sex: Female

DRUGS (2)
  1. TRULICITY [Suspect]
     Active Substance: DULAGLUTIDE
     Indication: TYPE 2 DIABETES MELLITUS
     Dosage: 0.75 MG, UNKNOWN
     Route: 065
     Dates: end: 201811
  2. TRULICITY [Suspect]
     Active Substance: DULAGLUTIDE
     Indication: TYPE 2 DIABETES MELLITUS
     Dosage: 0.75 MG, UNKNOWN
     Route: 065
     Dates: end: 201811

REACTIONS (11)
  - Alopecia [Unknown]
  - Nausea [Recovered/Resolved]
  - Feeding disorder [Recovered/Resolved]
  - Dyspepsia [Recovered/Resolved]
  - Drug ineffective [Unknown]
  - Nervousness [Recovered/Resolved]
  - Hyperhidrosis [Recovered/Resolved]
  - Feeling cold [Recovered/Resolved]
  - Headache [Recovered/Resolved]
  - Body temperature decreased [Recovered/Resolved]
  - Decreased appetite [Recovered/Resolved]
